FAERS Safety Report 19116756 (Version 1)
Quarter: 2021Q2

REPORT INFORMATION
  Report Type: Report from Study
  Country: US (occurrence: US)
  Receive Date: 20210409
  Receipt Date: 20210409
  Transmission Date: 20210717
  Serious: No
  Sender: FDA-Public Use
  Company Number: NVSC2021US079980

PATIENT
  Age: 54 Year
  Sex: Male

DRUGS (1)
  1. ENTRESTO [Suspect]
     Active Substance: SACUBITRIL\VALSARTAN
     Indication: CARDIAC FAILURE
     Dosage: 50 MG, BID (24/26 MG) 2 PILLS AT NIGHT AND ONE DURING THE DAY
     Route: 048
     Dates: start: 202102

REACTIONS (3)
  - Feeling abnormal [Unknown]
  - Hypotension [Unknown]
  - Cough [Unknown]

NARRATIVE: CASE EVENT DATE: 202103
